FAERS Safety Report 13377302 (Version 1)
Quarter: 2017Q1

REPORT INFORMATION
  Report Type: Report from Study
  Country: US (occurrence: US)
  Receive Date: 20170328
  Receipt Date: 20170328
  Transmission Date: 20170429
  Serious: Yes (Hospitalization)
  Sender: FDA-Public Use
  Company Number: US-SA-2017SA049482

PATIENT
  Age: 52 Year
  Sex: Male

DRUGS (1)
  1. THYROGEN [Suspect]
     Active Substance: THYROTROPIN ALFA
     Route: 065
     Dates: start: 201610, end: 201610

REACTIONS (5)
  - Palpitations [Recovering/Resolving]
  - Hypertension [Recovering/Resolving]
  - Dyspnoea [Recovering/Resolving]
  - Atrial fibrillation [Recovering/Resolving]
  - Dizziness [Recovering/Resolving]

NARRATIVE: CASE EVENT DATE: 2016
